FAERS Safety Report 4983557-1 (Version None)
Quarter: 2006Q2

REPORT INFORMATION
  Report Type: 
  Country: None (occurrence: None)
  Receive Date: 20060426
  Receipt Date: 20050825
  Transmission Date: 20061013
  Serious: Yes (Death)
  Sender: FDA-Public Use
  Company Number: US-ROCHE-415550

PATIENT
  Age: 15 Year
  Sex: Female

DRUGS (1)
  1. ACCUTANE [Suspect]
     Indication: ACNE
     Route: 048
     Dates: start: 20010315, end: 20010615

REACTIONS (4)
  - COMPLETED SUICIDE [None]
  - DEPRESSION [None]
  - EMOTIONAL DISORDER [None]
  - PSYCHOTIC DISORDER [None]
